FAERS Safety Report 7842969-9 (Version None)
Quarter: 2011Q4

REPORT INFORMATION
  Report Type: 
  Country: None (occurrence: None)
  Receive Date: 20111025
  Receipt Date: 20111013
  Transmission Date: 20120403
  Serious: Yes (Other)
  Sender: FDA-Public Use
  Company Number: CA-ELI_LILLY_AND_COMPANY-CA201110003057

PATIENT
  Sex: Male

DRUGS (9)
  1. BETAMETHASONE [Concomitant]
     Dosage: UNK DF, UNK
  2. ZYPREXA [Suspect]
     Indication: SCHIZOPHRENIA
     Dosage: 15 MG, UNK
  3. ZYPREXA [Suspect]
     Dosage: 20 MG, UNK
  4. ZYPREXA [Suspect]
     Dosage: 5 MG, UNK
  5. CLONAZEPAM [Concomitant]
     Dosage: UNK DF, UNK
  6. DESYREL [Concomitant]
     Dosage: UNK DF, UNK
  7. ZYPREXA [Suspect]
     Dosage: 10 MG, UNK
  8. RISPERIDONE [Concomitant]
     Dosage: UNK DF, UNK
  9. ZYPREXA [Suspect]
     Dosage: 25 MG, UNK

REACTIONS (11)
  - HEPATITIS C [None]
  - ANGINA PECTORIS [None]
  - HYPERGLYCAEMIA [None]
  - DYSLIPIDAEMIA [None]
  - OEDEMA [None]
  - WEIGHT INCREASED [None]
  - RASH [None]
  - DIABETES MELLITUS [None]
  - OVERDOSE [None]
  - HEPATITIS B [None]
  - CELLULITIS [None]
